FAERS Safety Report 5614962-8 (Version None)
Quarter: 2008Q1

REPORT INFORMATION
  Report Type: 
  Country: None (occurrence: None)
  Receive Date: 20080206
  Receipt Date: 20080118
  Transmission Date: 20080703
  Serious: Yes (Hospitalization)
  Sender: FDA-Public Use
  Company Number: SE-JNJFOC-20080200731

PATIENT
  Age: 64 Year
  Sex: Male

DRUGS (22)
  1. REMICADE [Suspect]
     Indication: VASCULITIS
     Route: 042
  2. REMICADE [Suspect]
     Indication: RHEUMATOID ARTHRITIS
     Route: 042
  3. PERSANTINE [Concomitant]
  4. ZARATOR [Concomitant]
  5. ALVEDON [Concomitant]
  6. DETRUSITOL [Concomitant]
  7. PLENDIL [Concomitant]
  8. INHIBACE [Concomitant]
  9. PLENDIL [Concomitant]
  10. CITALOPRAM HYDROBROMIDE [Concomitant]
  11. METHOTREXATE [Concomitant]
  12. FOLACIN [Concomitant]
  13. BEHEPAN [Concomitant]
  14. FUNGIZONE [Concomitant]
  15. PREDNISOLONE [Concomitant]
  16. FUNGORAL [Concomitant]
  17. FLUNITRAZEPAM [Concomitant]
  18. ASPIRIN [Concomitant]
  19. MIANSERIN [Concomitant]
  20. PLAVIX [Concomitant]
  21. OFTAGEL [Concomitant]
     Route: 047
  22. ZANTAC [Concomitant]

REACTIONS (2)
  - CEREBRAL HAEMORRHAGE [None]
  - HEMIPARESIS [None]
